FAERS Safety Report 12661174 (Version 2)
Quarter: 2016Q3

REPORT INFORMATION
  Report Type: Spontaneous
  Country: US (occurrence: US)
  Receive Date: 20160817
  Receipt Date: 20160901
  Transmission Date: 20161109
  Serious: No
  Sender: FDA-Public Use
  Company Number: US-RELYPSA-RLY2016000595

PATIENT
  Age: 65 Year
  Sex: Female

DRUGS (11)
  1. GEMFIBROZIL. [Concomitant]
     Active Substance: GEMFIBROZIL
  2. PIOGLITAZONE HCL [Concomitant]
     Active Substance: PIOGLITAZONE
  3. VELTASSA [Suspect]
     Active Substance: PATIROMER
     Indication: HYPERKALAEMIA
     Dosage: 8.4 G, QD
     Route: 048
  4. ACTOS [Concomitant]
     Active Substance: PIOGLITAZONE HYDROCHLORIDE
  5. SODIUM POLYETHYLENE SULFONATE [Concomitant]
  6. CRESTOR [Concomitant]
     Active Substance: ROSUVASTATIN CALCIUM
  7. GLIMEPIRIDE. [Concomitant]
     Active Substance: GLIMEPIRIDE
  8. KIONEX [Concomitant]
     Active Substance: SODIUM POLYSTYRENE SULFONATE
  9. ATORVASTATIN CALCIUM. [Concomitant]
     Active Substance: ATORVASTATIN CALCIUM
  10. BUMETANIDE. [Concomitant]
     Active Substance: BUMETANIDE
  11. LORAZEPAM. [Concomitant]
     Active Substance: LORAZEPAM

REACTIONS (4)
  - Nausea [Unknown]
  - Decreased appetite [Unknown]
  - Faeces discoloured [Unknown]
  - Constipation [Unknown]

NARRATIVE: CASE EVENT DATE: 201604
